FAERS Safety Report 13138275 (Version 1)
Quarter: 2017Q1

REPORT INFORMATION
  Report Type: Spontaneous
  Country: US (occurrence: US)
  Receive Date: 20170122
  Receipt Date: 20170122
  Transmission Date: 20170428
  Serious: Yes (Hospitalization)
  Sender: FDA-Public Use
  Company Number: None

PATIENT
  Age: 3 Year
  Sex: Male
  Weight: 14 kg

DRUGS (5)
  1. ONCASPAR [Suspect]
     Active Substance: PEGASPARGASE
     Dates: end: 20170105
  2. METHOTREXATE. [Suspect]
     Active Substance: METHOTREXATE
     Dates: end: 20170109
  3. DEXAMETHASONE. [Suspect]
     Active Substance: DEXAMETHASONE
     Dates: end: 20170116
  4. CYTARABINE. [Suspect]
     Active Substance: CYTARABINE
     Dates: end: 20170102
  5. VINCRISTINE SULFATE. [Suspect]
     Active Substance: VINCRISTINE SULFATE
     Dates: end: 20170109

REACTIONS (5)
  - Acute haemolytic transfusion reaction [None]
  - Acute kidney injury [None]
  - Dialysis [None]
  - Hydronephrosis [None]
  - Renal papillary necrosis [None]

NARRATIVE: CASE EVENT DATE: 20170114
